FAERS Safety Report 6724449-7 (Version None)
Quarter: 2010Q2

REPORT INFORMATION
  Report Type: 
  Country: None (occurrence: None)
  Receive Date: 20100513
  Receipt Date: 20100507
  Transmission Date: 20101027
  Serious: Yes (Other)
  Sender: FDA-Public Use
  Company Number: US-GENENTECH-300330

PATIENT
  Sex: Female
  Weight: 74.83 kg

DRUGS (1)
  1. XOLAIR [Suspect]
     Indication: DRUG USE FOR UNKNOWN INDICATION
     Dosage: UNK MG, Q2W
     Route: 058
     Dates: start: 20081001

REACTIONS (3)
  - HYDRONEPHROSIS [None]
  - NEPHROLITHIASIS [None]
  - RENAL COLIC [None]
